FAERS Safety Report 9703024 (Version 1)
Quarter: 2013Q4

REPORT INFORMATION
  Report Type: Report from Study
  Country: BR (occurrence: BR)
  Receive Date: 20131122
  Receipt Date: 20131122
  Transmission Date: 20140711
  Serious: Yes (Other)
  Sender: FDA-Public Use
  Company Number: BR-ROCHE-1304525

PATIENT
  Sex: Female
  Weight: 56 kg

DRUGS (7)
  1. ACTEMRA [Suspect]
     Indication: RHEUMATOID ARTHRITIS
     Dosage: LATEST INFUSION ON 23/JUL/2013
     Route: 065
     Dates: start: 20130411
  2. LOSARTAN [Concomitant]
  3. ARAVA [Concomitant]
  4. PREDNISONE [Concomitant]
  5. INSULIN [Concomitant]
  6. METFORMIN [Concomitant]
     Route: 065
  7. HYDROCHLOROTHIAZIDE [Concomitant]

REACTIONS (2)
  - Rheumatoid arthritis [Not Recovered/Not Resolved]
  - Gait disturbance [Not Recovered/Not Resolved]
